FAERS Safety Report 5382055-3 (Version None)
Quarter: 2007Q3

REPORT INFORMATION
  Report Type: 
  Country: None (occurrence: None)
  Receive Date: 20070709
  Receipt Date: 20070628
  Transmission Date: 20080115
  Serious: Yes (Death)
  Sender: FDA-Public Use
  Company Number: RU-GENENTECH-242072

PATIENT
  Sex: Male
  Weight: 82.5 kg

DRUGS (7)
  1. RITUXIMAB [Suspect]
     Indication: CHRONIC LYMPHOCYTIC LEUKAEMIA
     Dosage: UNK MG/M2, UNK
     Route: 042
     Dates: start: 20060928, end: 20070126
  2. FLUDARABINE PHOSPHATE [Suspect]
     Indication: CHRONIC LYMPHOCYTIC LEUKAEMIA
     Dosage: 25 MG/M2, UNK
     Route: 042
     Dates: start: 20060929, end: 20070126
  3. FLUDARABINE PHOSPHATE [Suspect]
     Dosage: 37 MG, UNK
     Dates: start: 20061025
  4. FLUDARABINE PHOSPHATE [Suspect]
     Dosage: 24.5 MG, UNK
     Dates: start: 20061226
  5. CYCLOPHOSPHAMIDE [Suspect]
     Indication: CHRONIC LYMPHOCYTIC LEUKAEMIA
     Dosage: 250 MG/M2, UNK
     Route: 042
     Dates: start: 20060929, end: 20070126
  6. CYCLOPHOSPHAMIDE [Suspect]
     Dosage: 370 MG, UNK
     Dates: start: 20061025
  7. CYCLOPHOSPHAMIDE [Suspect]
     Dosage: 245 MG, UNK
     Dates: start: 20061226

REACTIONS (5)
  - COMPUTERISED TOMOGRAM ABNORMAL [None]
  - METASTASES TO KIDNEY [None]
  - METASTASES TO LUNG [None]
  - NEOPLASM MALIGNANT [None]
  - POISONING [None]
